FAERS Safety Report 8462500-7 (Version None)
Quarter: 2012Q2

REPORT INFORMATION
  Report Type: 
  Country: None (occurrence: None)
  Receive Date: 20120625
  Receipt Date: 20120615
  Transmission Date: 20120825
  Serious: Yes (Other)
  Sender: FDA-Public Use
  Company Number: PHHY2012EC053903

PATIENT
  Sex: Female

DRUGS (2)
  1. FUROSEMIDE [Concomitant]
     Dosage: 40 MG, DAILY
  2. EXFORGE HCT [Suspect]
     Indication: HYPERTENSION
     Dosage: 1 DF (160/5/12.5MG) DAILY
     Route: 048
     Dates: end: 20120501

REACTIONS (2)
  - ASCITES [None]
  - HEPATIC CIRRHOSIS [None]
